FAERS Safety Report 18466447 (Version 1)
Quarter: 2020Q4

REPORT INFORMATION
  Report Type: Spontaneous
  Country: CN (occurrence: CN)
  Receive Date: 20201104
  Receipt Date: 20201104
  Transmission Date: 20210114
  Serious: Yes (Other)
  Sender: FDA-Public Use
  Company Number: CN-ROCHE-2704192

PATIENT
  Sex: Female
  Weight: 64 kg

DRUGS (4)
  1. HERCEPTIN [Suspect]
     Active Substance: TRASTUZUMAB
     Indication: BREAST CANCER RECURRENT
     Dosage: 380 MG (FIRST DOSE WAS 440 MG), ON 30/MAY/2017 AND 19/JUN/2017
     Route: 065
     Dates: start: 20170120, end: 201801
  2. CARBOPLATIN. [Concomitant]
     Active Substance: CARBOPLATIN
     Indication: BREAST CANCER RECURRENT
     Dosage: ON 30/MAY/2017 AND 19/JUN/2017 RECEIVED 550 MG
     Dates: start: 20170120
  3. EXEMESTANE. [Concomitant]
     Active Substance: EXEMESTANE
     Dosage: FOR ENDOCRINE THERAPY
     Dates: end: 20180901
  4. DOCETAXEL. [Concomitant]
     Active Substance: DOCETAXEL
     Indication: BREAST CANCER RECURRENT
     Dosage: ON 30/MAY/2017 AND 19/JUN/2017 RECEIVED 120 MG
     Dates: start: 20170120

REACTIONS (4)
  - Alanine aminotransferase increased [Unknown]
  - Aspartate aminotransferase increased [Unknown]
  - Platelet count decreased [Unknown]
  - Transaminases increased [Unknown]
